FAERS Safety Report 8179324-0 (Version None)
Quarter: 2012Q1

REPORT INFORMATION
  Report Type: 
  Country: None (occurrence: None)
  Receive Date: 20120302
  Receipt Date: 20120220
  Transmission Date: 20120608
  Serious: Yes (Death)
  Sender: FDA-Public Use
  Company Number: GB-GENZYME-CLOF-1001819

PATIENT
  Sex: Female
  Weight: 67.2 kg

DRUGS (2)
  1. EVOLTRA [Suspect]
     Indication: ACUTE MYELOMONOCYTIC LEUKAEMIA
     Dosage: 34 MG, QD
     Route: 042
     Dates: start: 20070413
  2. DAUNORUBICIN HCL [Suspect]
     Indication: ACUTE MYELOMONOCYTIC LEUKAEMIA
     Dosage: 85 MG, QD
     Route: 042
     Dates: start: 20070413

REACTIONS (3)
  - MULTI-ORGAN FAILURE [None]
  - CLOSTRIDIUM DIFFICILE COLITIS [None]
  - NEUTROPENIA [None]
